FAERS Safety Report 6761919-X (Version None)
Quarter: 2010Q2

REPORT INFORMATION
  Report Type: 
  Country: None (occurrence: None)
  Receive Date: 20100609
  Receipt Date: 20100601
  Transmission Date: 20101027
  Serious: Yes (Hospitalization)
  Sender: FDA-Public Use
  Company Number: JP-B.I. PHARMACEUTICALS,INC./RIDGEFIELD-2010-DE-02054GD

PATIENT
  Age: 60 Year
  Sex: Female

DRUGS (2)
  1. SIFROL [Suspect]
     Indication: PARKINSON'S DISEASE
     Dosage: UP-TITRATED TO 3 MG/DAY OVER A 2-MONTHS PERIOD
     Route: 048
  2. PERGOLIDE [Suspect]
     Indication: PARKINSON'S DISEASE

REACTIONS (2)
  - CAMPTOCORMIA [None]
  - POSTURE ABNORMAL [None]
